FAERS Safety Report 24933099 (Version 1)
Quarter: 2025Q1

REPORT INFORMATION
  Report Type: Report from Study
  Country: US (occurrence: US)
  Receive Date: 20250206
  Receipt Date: 20250206
  Transmission Date: 20250409
  Serious: Yes (Other)
  Sender: ABBVIE
  Company Number: US-ABBVIE-6113570

PATIENT
  Sex: Female

DRUGS (1)
  1. RINVOQ [Suspect]
     Active Substance: UPADACITINIB
     Indication: Ankylosing spondylitis
     Route: 048
     Dates: start: 20220101

REACTIONS (5)
  - Lower limb fracture [Unknown]
  - Depression [Unknown]
  - Femur fracture [Unknown]
  - Hip surgery [Unknown]
  - Fall [Unknown]
